FAERS Safety Report 6019516-X (Version None)
Quarter: 2008Q4

REPORT INFORMATION
  Report Type: 
  Country: None (occurrence: None)
  Receive Date: 20081224
  Receipt Date: 20081219
  Transmission Date: 20090506
  Serious: Yes (Death, Hospitalization)
  Sender: FDA-Public Use
  Company Number: ES-CELGENEUS-144-CCAZA-08111518

PATIENT
  Sex: Female

DRUGS (9)
  1. AZACITIDINE [Suspect]
     Route: 058
     Dates: start: 20081119, end: 20081119
  2. HYDREA [Concomitant]
     Indication: MYELODYSPLASTIC SYNDROME
     Route: 065
  3. VITAMIN B1 TAB [Concomitant]
     Indication: DRUG USE FOR UNKNOWN INDICATION
     Route: 065
  4. VITAMIN B6 [Concomitant]
     Indication: DRUG USE FOR UNKNOWN INDICATION
     Route: 065
  5. VITAMIN B-12 [Concomitant]
     Indication: DRUG USE FOR UNKNOWN INDICATION
     Route: 065
  6. FOLIC ACID [Concomitant]
     Indication: DRUG USE FOR UNKNOWN INDICATION
     Route: 065
  7. AMCHAFIBRIN [Concomitant]
     Indication: DRUG USE FOR UNKNOWN INDICATION
     Route: 065
  8. EPOGEN [Concomitant]
     Indication: DRUG USE FOR UNKNOWN INDICATION
     Route: 065
  9. MORPHINE SULFATE [Concomitant]
     Indication: PAIN MANAGEMENT
     Route: 065
     Dates: start: 20081119, end: 20081119

REACTIONS (3)
  - CHRONIC MYELOMONOCYTIC LEUKAEMIA [None]
  - ILEUS PARALYTIC [None]
  - RENAL FAILURE CHRONIC [None]
